FAERS Safety Report 4927842-8 (Version None)
Quarter: 2006Q1

REPORT INFORMATION
  Report Type: 
  Country: None (occurrence: None)
  Receive Date: 20060127
  Receipt Date: 20051031
  Transmission Date: 20060701
  Serious: Yes (Disabling)
  Sender: FDA-Public Use
  Company Number: 2005131405

PATIENT
  Age: 26 Year
  Sex: Female
  Weight: 50.8029 kg

DRUGS (6)
  1. LYRICA [Suspect]
     Indication: PAIN IN EXTREMITY
     Dosage: 25 (25 MG, 1 IN 1 D),
     Dates: start: 20050914
  2. VISTARIL (HYDROXYZINE EMBONATE) [Concomitant]
  3. FENTANYL [Concomitant]
  4. ASPIRIN [Concomitant]
  5. CLONIDINE [Concomitant]
  6. CYMBALTA [Concomitant]

REACTIONS (1)
  - VOMITING [None]
